FAERS Safety Report 13111824 (Version 1)
Quarter: 2017Q1

REPORT INFORMATION
  Report Type: Spontaneous
  Country: US (occurrence: US)
  Receive Date: 20170113
  Receipt Date: 20170113
  Transmission Date: 20170428
  Serious: No
  Sender: FDA-Public Use
  Company Number: US-ASTRAZENECA-2017SE01192

PATIENT
  Age: 76 Year
  Sex: Female
  Weight: 90.7 kg

DRUGS (7)
  1. CALCIUM [Concomitant]
     Active Substance: CALCIUM
     Indication: BONE DISORDER
     Route: 048
  2. ANASTROZOLE. [Suspect]
     Active Substance: ANASTROZOLE
     Indication: BREAST CANCER FEMALE
     Route: 048
  3. HYDROCHLOROTHIAZIDE. [Concomitant]
     Active Substance: HYDROCHLOROTHIAZIDE
     Indication: HYPERTENSION
     Route: 048
  4. SULINDAC. [Concomitant]
     Active Substance: SULINDAC
     Indication: PAIN IN EXTREMITY
     Route: 048
  5. OXYBUTYNIN [Concomitant]
     Active Substance: OXYBUTYNIN
     Indication: GAIT DISTURBANCE
     Route: 048
  6. TYLENOL [Concomitant]
     Active Substance: ACETAMINOPHEN
     Indication: ARTHRITIS
     Route: 048
  7. AROMASIN [Concomitant]
     Active Substance: EXEMESTANE
     Indication: NEOPLASM MALIGNANT
     Route: 048
     Dates: start: 2016

REACTIONS (8)
  - Malaise [Unknown]
  - Pain in extremity [Unknown]
  - Peripheral swelling [None]
  - Pain in extremity [None]
  - Abdominal discomfort [Unknown]
  - Oedema peripheral [Unknown]
  - Joint swelling [None]
  - Arthralgia [None]
